FAERS Safety Report 11883272 (Version 2)
Quarter: 2016Q1

REPORT INFORMATION
  Report Type: Spontaneous
  Country: US (occurrence: US)
  Receive Date: 20151231
  Receipt Date: 20160317
  Transmission Date: 20160526
  Serious: Yes (Hospitalization, Other)
  Sender: FDA-Public Use
  Company Number: US-SHIRE-US201516770

PATIENT
  Age: 40 Year
  Sex: Female
  Weight: 79.6 kg

DRUGS (8)
  1. TPN [Concomitant]
     Active Substance: AMINO ACIDS\DEXTROSE\ELECTROLYTES NOS\SOYBEAN OIL
     Dosage: UNK
     Route: 042
     Dates: start: 201512
  2. CHOLESTYRAMINE. [Concomitant]
     Active Substance: CHOLESTYRAMINE
     Indication: PRODUCT USED FOR UNKNOWN INDICATION
     Dosage: 1 PACKET, 2X/DAY:BID
     Route: 048
  3. ZOFRAN [Concomitant]
     Active Substance: ONDANSETRON HYDROCHLORIDE
     Indication: NAUSEA
     Dosage: 1 TABLET, EVERY 6 HOURS, AS REQ^D
     Route: 048
  4. LOVENOX [Concomitant]
     Active Substance: ENOXAPARIN SODIUM
     Indication: HYPERCOAGULATION
     Dosage: 80 MG, 2X/DAY:BID
     Route: 058
  5. PANTOPRAZOLE [Concomitant]
     Active Substance: PANTOPRAZOLE SODIUM
     Indication: PRODUCT USED FOR UNKNOWN INDICATION
     Dosage: 1 TABLET, 1X/DAY:QD
     Route: 048
  6. TPN [Concomitant]
     Active Substance: AMINO ACIDS\DEXTROSE\ELECTROLYTES NOS\SOYBEAN OIL
     Indication: PARENTERAL NUTRITION
     Dosage: UNK
     Route: 042
     Dates: end: 201512
  7. GATTEX [Suspect]
     Active Substance: TEDUGLUTIDE\WATER
     Indication: MALABSORPTION
     Dosage: 3.8 MG, 1X/DAY:QD
     Route: 058
     Dates: start: 20151008
  8. GAS-X [Concomitant]
     Active Substance: DIMETHICONE
     Indication: FLATULENCE
     Dosage: 80 MG, EVERY 6 HOURS, AS REQ^D
     Route: 048

REACTIONS (8)
  - Device related infection [Recovered/Resolved]
  - Dyspnoea [Recovered/Resolved]
  - Fluid overload [Recovered/Resolved]
  - Escherichia sepsis [Recovered/Resolved]
  - Pulmonary oedema [Recovered/Resolved]
  - Staphylococcal infection [Recovered/Resolved]
  - Pulmonary hypertension [Recovered/Resolved]
  - Pericardial effusion [Recovered/Resolved]

NARRATIVE: CASE EVENT DATE: 20151119
